FAERS Safety Report 7628432-9 (Version None)
Quarter: 2011Q3

REPORT INFORMATION
  Report Type: 
  Country: None (occurrence: None)
  Receive Date: 20110722
  Receipt Date: 20110719
  Transmission Date: 20111222
  Serious: No
  Sender: FDA-Public Use
  Company Number: US-PFIZER INC-2011163707

PATIENT
  Sex: Female
  Weight: 54 kg

DRUGS (2)
  1. DEPO-PROVERA [Suspect]
     Indication: OFF LABEL USE
     Dosage: UNK
     Dates: start: 20110502
  2. DEPO-PROVERA [Suspect]
     Indication: DYSMENORRHOEA

REACTIONS (2)
  - MENORRHAGIA [None]
  - MENOMETRORRHAGIA [None]
